FAERS Safety Report 6860912-6 (Version None)
Quarter: 2010Q3

REPORT INFORMATION
  Report Type: 
  Country: None (occurrence: None)
  Receive Date: 20100715
  Receipt Date: 20100701
  Transmission Date: 20110219
  Serious: Yes (Other)
  Sender: FDA-Public Use
  Company Number: 2712010

PATIENT
  Age: 59 Year
  Sex: Female

DRUGS (9)
  1. BETIMOL (TIMOLOL OPTHALMIC SOLUTION) STRENGTH: 0.25% OR 0.5%; MFR/LABL [Suspect]
     Indication: OCULAR HYPERTENSION
     Dosage: OCULAR
     Dates: start: 20100312
  2. BETIMOL (TIMOLOL OPTHALMIC SOLUTION) STRENGTH: 0.25% OR 0.5%; MFR/LABL [Suspect]
     Indication: OPEN ANGLE GLAUCOMA
     Dosage: OCULAR
     Dates: start: 20100312
  3. ASPIRIN [Concomitant]
  4. CALCIUM [Concomitant]
  5. CHONDROITIN SULFATE SODIUM [Concomitant]
  6. DORZOLAMIDE HCL [Concomitant]
  7. GLUCOSAMINE SULFATE [Concomitant]
  8. MINERALS (UNSPECIFIED) [Concomitant]
  9. VITAMINS [Concomitant]

REACTIONS (1)
  - RETINAL DETACHMENT [None]
